FAERS Safety Report 10174318 (Version 1)
Quarter: 2014Q2

REPORT INFORMATION
  Report Type: Report from Study
  Country: KR (occurrence: KR)
  Receive Date: 20140515
  Receipt Date: 20140515
  Transmission Date: 20141212
  Serious: Yes (Death)
  Sender: FDA-Public Use
  Company Number: KR-SA-2014SA058935

PATIENT
  Age: 75 Year
  Sex: Male
  Weight: 45 kg

DRUGS (2)
  1. LANTUS [Suspect]
     Indication: DIABETES MELLITUS
     Dosage: DOSE:26 UNIT(S)
     Route: 058
     Dates: end: 201404
  2. NOVORAPID [Suspect]
     Indication: DIABETES MELLITUS
     Dosage: DOSE -6-6-6 U DOSE:6 UNIT(S)
     Route: 058
     Dates: end: 201404

REACTIONS (3)
  - Sudden death [Fatal]
  - Depression [Unknown]
  - Blood glucose increased [Unknown]
